FAERS Safety Report 11468584 (Version 8)
Quarter: 2016Q1

REPORT INFORMATION
  Report Type: Spontaneous
  Country: US (occurrence: US)
  Receive Date: 20150908
  Receipt Date: 20160218
  Transmission Date: 20160525
  Serious: Yes (Hospitalization, Other)
  Sender: FDA-Public Use
  Company Number: US-GLAXOSMITHKLINE-US2015GSK126025

PATIENT
  Age: 37 Year
  Sex: Female

DRUGS (8)
  1. LETAIRIS [Concomitant]
     Active Substance: AMBRISENTAN
     Dosage: UNK
  2. FLOLAN [Suspect]
     Active Substance: EPOPROSTENOL SODIUM
     Dosage: 13 NG/KG/MIN CONTINUOUSLY
  3. FLOLAN [Suspect]
     Active Substance: EPOPROSTENOL SODIUM
     Dosage: 19 NG/KG/MIN CONTINUOUS
     Route: 042
     Dates: start: 20150828
  4. FLOLAN [Suspect]
     Active Substance: EPOPROSTENOL SODIUM
     Dosage: 22 NG/KG/MIN CONTINUOUS; CONCENTRATION: 45,000 NG/ML; PUMP RATE: 64 ML/DAY; VIAL STRENGTH: 1.5 MG
     Route: 042
     Dates: start: 20150828
  5. FLOLAN [Suspect]
     Active Substance: EPOPROSTENOL SODIUM
     Dosage: 14 NG/KG/MIN CONTINUOUS
     Route: 042
  6. FLOLAN [Suspect]
     Active Substance: EPOPROSTENOL SODIUM
     Indication: PULMONARY ARTERIAL HYPERTENSION
     Dosage: 5 NG/KG/MIN CONTINUOUS; CONCENTRATION: 15,000 NG/ML; PUMP RATE: 62 ML/DAY; VIAL STRENGTH: 1.5 MG
     Route: 042
     Dates: start: 20150828
  7. REVATIO [Concomitant]
     Active Substance: SILDENAFIL CITRATE
     Dosage: UNK
  8. FLOLAN [Suspect]
     Active Substance: EPOPROSTENOL SODIUM
     Dosage: 16 DF, CO

REACTIONS (18)
  - Pneumonia [Unknown]
  - Pain in jaw [Not Recovered/Not Resolved]
  - Pruritus [Unknown]
  - Catheter site infection [Unknown]
  - Decreased appetite [Not Recovered/Not Resolved]
  - Diarrhoea [Unknown]
  - Feeling hot [Unknown]
  - Product preparation error [Unknown]
  - Headache [Not Recovered/Not Resolved]
  - Respiratory distress [Unknown]
  - Dizziness [Recovering/Resolving]
  - Influenza like illness [Unknown]
  - Hospitalisation [Unknown]
  - Infusion site swelling [Unknown]
  - Flushing [Not Recovered/Not Resolved]
  - Fatigue [Not Recovered/Not Resolved]
  - Rash [Unknown]
  - Device use error [Unknown]

NARRATIVE: CASE EVENT DATE: 201508
